FAERS Safety Report 8668164 (Version 3)
Quarter: 2013Q1

REPORT INFORMATION
  Report Type: Spontaneous
  Country: US (occurrence: US)
  Receive Date: 20120717
  Receipt Date: 20130226
  Transmission Date: 20140127
  Serious: Yes (Hospitalization, Disabling)
  Sender: FDA-Public Use
  Company Number: US-BAYER-2012-070216

PATIENT
  Age: 19 Year
  Sex: Female
  Weight: 71.2 kg

DRUGS (11)
  1. YAZ [Suspect]
     Indication: CONTRACEPTION
     Dosage: UNK
     Dates: start: 200808, end: 200907
  2. YAZ [Suspect]
     Indication: ACNE
     Dosage: UNK
     Dates: start: 20071106, end: 20090630
  3. YAZ [Suspect]
     Indication: PREMENSTRUAL SYNDROME
  4. YASMIN [Suspect]
     Indication: CONTRACEPTION
     Dosage: UNK
     Dates: start: 200806, end: 200808
  5. YASMIN [Suspect]
     Indication: ACNE
     Dosage: UNK
     Dates: start: 20071008
  6. YASMIN [Suspect]
     Indication: PREMENSTRUAL DYSPHORIC DISORDER
  7. IBUPROFEN [Concomitant]
     Dosage: UNK
     Dates: start: 20090701, end: 20090705
  8. CANNABIS SATIVA SUBSP. INDICA TOP [Concomitant]
     Dosage: UNK
     Dates: start: 20090604
  9. NITROFURANTOIN [Concomitant]
     Dosage: 100 MG, UNK
     Route: 048
     Dates: start: 20090429
  10. NAPROXEN [Concomitant]
     Dosage: 550 MG, UNK
     Route: 048
     Dates: start: 20090429
  11. TORADOL [Concomitant]

REACTIONS (7)
  - Pulmonary embolism [None]
  - Injury [None]
  - Chest pain [None]
  - Tachycardia [None]
  - Pain [None]
  - Asthenia [None]
  - Fear [None]
